FAERS Safety Report 8020500-5 (Version None)
Quarter: 2012Q1

REPORT INFORMATION
  Report Type: 
  Country: None (occurrence: None)
  Receive Date: 20120103
  Receipt Date: 20111221
  Transmission Date: 20120608
  Serious: Yes (Other)
  Sender: FDA-Public Use
  Company Number: FR-WATSON-2011-22248

PATIENT
  Sex: Male

DRUGS (2)
  1. RED YEAST RICE [Concomitant]
     Indication: HYPERCHOLESTEROLAEMIA
     Dosage: UNK
     Route: 065
  2. TRELSTAR [Suspect]
     Indication: PROSTATE CANCER
     Dosage: 22.5 MG ( 22.5 MG, 1 IN 6 M)
     Route: 030
     Dates: start: 20100901, end: 20100901

REACTIONS (1)
  - MYELOPROLIFERATIVE DISORDER [None]
